FAERS Safety Report 9607392 (Version 4)
Quarter: 2013Q4

REPORT INFORMATION
  Report Type: Spontaneous
  Country: CA (occurrence: CA)
  Receive Date: 20131009
  Receipt Date: 20131203
  Transmission Date: 20140711
  Serious: Yes (Hospitalization, Other)
  Sender: FDA-Public Use
  Company Number: CA-AMGEN-CANSP2013055476

PATIENT
  Age: 62 Year
  Sex: Female

DRUGS (10)
  1. ENBREL [Suspect]
     Indication: RHEUMATOID ARTHRITIS
     Dosage: 50 MG, QWK
     Route: 058
     Dates: start: 20130712, end: 201310
  2. ENDOCET [Concomitant]
     Dosage: 1 TABLET DAILY
  3. TRAZODONE [Concomitant]
     Indication: ANXIETY
     Dosage: 100 MG, QHS
     Route: 048
  4. ALPRAZOLAM [Concomitant]
     Indication: ANXIETY
     Dosage: 0.5 MG 1 TABLET 3 TIMES PER DAY
     Route: 048
  5. METHOTREXATE [Concomitant]
     Dosage: 25 MG, QWK
     Route: 058
  6. FOLIC ACID [Concomitant]
     Dosage: 5 MG, 1 TABLET 3 TIMES/WK
  7. RAMIPRIL [Concomitant]
     Indication: HYPERTENSION
     Dosage: 10 MG, QD
     Route: 048
  8. VITAMIN D                          /00107901/ [Concomitant]
     Dosage: 2000 IU, QD
  9. CALCIUM [Concomitant]
     Dosage: 500 MG, QD
  10. PREDNISONE [Concomitant]
     Dosage: 5 MG 2 TABLETS DAILY

REACTIONS (17)
  - Chronic obstructive pulmonary disease [Unknown]
  - Dyspnoea [Recovering/Resolving]
  - Pyrexia [Recovering/Resolving]
  - Bronchitis [Unknown]
  - Pneumonia [Not Recovered/Not Resolved]
  - Headache [Not Recovered/Not Resolved]
  - Wheezing [Not Recovered/Not Resolved]
  - Productive cough [Not Recovered/Not Resolved]
  - Decreased appetite [Not Recovered/Not Resolved]
  - Vertigo [Not Recovered/Not Resolved]
  - Balance disorder [Not Recovered/Not Resolved]
  - Pain [Not Recovered/Not Resolved]
  - Feeling of body temperature change [Not Recovered/Not Resolved]
  - Fatigue [Not Recovered/Not Resolved]
  - Malaise [Not Recovered/Not Resolved]
  - Nasopharyngitis [Not Recovered/Not Resolved]
  - Chest pain [Not Recovered/Not Resolved]
